FAERS Safety Report 7351882-5 (Version None)
Quarter: 2011Q1

REPORT INFORMATION
  Report Type: 
  Country: None (occurrence: None)
  Receive Date: 20110315
  Receipt Date: 20110309
  Transmission Date: 20110831
  Serious: Yes (Other)
  Sender: FDA-Public Use
  Company Number: CN-JNJFOC-20110207449

PATIENT
  Age: 22 Year
  Sex: Female

DRUGS (5)
  1. BENZHEXOL [Suspect]
     Indication: SCHIZOPHRENIA
     Route: 065
  2. RISPERDAL [Suspect]
     Route: 048
  3. RISPERDAL [Suspect]
     Route: 048
  4. RISPERDAL [Suspect]
     Indication: SCHIZOPHRENIA
     Route: 048
  5. RISPERDAL [Suspect]
     Route: 048

REACTIONS (4)
  - SUICIDE ATTEMPT [None]
  - SOMNOLENCE [None]
  - INTENTIONAL OVERDOSE [None]
  - HYPERHIDROSIS [None]
